FAERS Safety Report 8539597-9 (Version None)
Quarter: 2012Q3

REPORT INFORMATION
  Report Type: 
  Country: None (occurrence: None)
  Receive Date: 20120726
  Receipt Date: 20120717
  Transmission Date: 20120928
  Serious: Yes (Other)
  Sender: FDA-Public Use
  Company Number: BR-JNJFOC-20120709331

PATIENT
  Age: 28 Year
  Sex: Male

DRUGS (4)
  1. HALDOL [Suspect]
     Indication: DEPRESSION
     Route: 065
     Dates: start: 20091101
  2. IMIPRAMINE HCL [Concomitant]
     Indication: DEPRESSION
     Route: 065
     Dates: start: 20110201
  3. HALDOL [Suspect]
     Route: 065
     Dates: start: 20000101, end: 20090401
  4. BIPERIDEN HYDROCHLORIDE TAB [Concomitant]
     Indication: DEPRESSION
     Route: 065
     Dates: start: 20100101

REACTIONS (7)
  - DRUG PRESCRIBING ERROR [None]
  - SOCIAL AVOIDANT BEHAVIOUR [None]
  - WEIGHT DECREASED [None]
  - MEDICATION ERROR [None]
  - PANIC ATTACK [None]
  - PIGMENTATION DISORDER [None]
  - WEIGHT INCREASED [None]
